FAERS Safety Report 9092215 (Version 1)
Quarter: 2013Q1

REPORT INFORMATION
  Report Type: Report from Study
  Country: US (occurrence: US)
  Receive Date: 20130131
  Receipt Date: 20130131
  Transmission Date: 20140127
  Serious: No
  Sender: FDA-Public Use
  Company Number: US-ABBOTT-12P-163-0990731-00

PATIENT
  Age: 63 Year
  Sex: Female

DRUGS (10)
  1. HUMIRA [Suspect]
     Dates: start: 201205
  2. NAPROSYN [Suspect]
     Indication: PRODUCT USED FOR UNKNOWN INDICATION
     Dosage: DAILY
  3. METHOTREXATE [Concomitant]
     Indication: RHEUMATOID ARTHRITIS
     Dosage: WEEKLY
  4. NEURONTIN [Concomitant]
     Indication: NEUROPATHY PERIPHERAL
     Dosage: ONE IN THE AM, ONE AT NOON, TWO AT NIGHT
  5. ULTRAM [Concomitant]
     Indication: RHEUMATOID ARTHRITIS
  6. FOLIC ACID [Concomitant]
     Indication: VITAMIN SUPPLEMENTATION
  7. ELAVIL [Concomitant]
     Indication: INSOMNIA
     Dosage: ONE OR TWO AT NIGHT; RARELY USED
  8. SYMBICORT [Concomitant]
     Indication: ASTHMA
     Dosage: DAILY
  9. LISINOPRIL [Concomitant]
     Indication: HYPERTENSION
     Dosage: DAILY
  10. HYDROCHLOROTHIAZIDE [Concomitant]
     Indication: HYPERTENSION
     Dosage: DAILY

REACTIONS (8)
  - Feeling abnormal [Recovering/Resolving]
  - Nausea [Unknown]
  - Hypotension [Unknown]
  - Syncope [Recovering/Resolving]
  - Syncope [Recovering/Resolving]
  - Loss of consciousness [Recovering/Resolving]
  - Faecal incontinence [Recovering/Resolving]
  - Hypersomnia [Recovering/Resolving]
